FAERS Safety Report 6134354-5 (Version None)
Quarter: 2009Q1

REPORT INFORMATION
  Report Type: 
  Country: None (occurrence: None)
  Receive Date: 20090327
  Receipt Date: 20090323
  Transmission Date: 20090719
  Serious: Yes (Hospitalization)
  Sender: FDA-Public Use
  Company Number: JP-TEVA-186986ISR

PATIENT
  Sex: Female
  Weight: 54 kg

DRUGS (8)
  1. FLUOROURACIL [Suspect]
     Indication: LARGE INTESTINE CARCINOMA
     Route: 042
     Dates: start: 20090126
  2. FOLINIC ACID [Suspect]
     Indication: LARGE INTESTINE CARCINOMA
     Route: 042
     Dates: start: 20090126
  3. IRINOTECAN HCL [Suspect]
     Indication: LARGE INTESTINE CARCINOMA
     Route: 042
     Dates: start: 20090126
  4. AXITINIB [Suspect]
     Indication: LARGE INTESTINE CARCINOMA
     Dates: start: 20090126
  5. CANDESARTAN CILEXETIL [Concomitant]
     Dates: start: 20090212
  6. AMLODIPINE [Concomitant]
     Dates: start: 20090220
  7. LOPERAMIDE HCL [Concomitant]
     Dates: start: 20090131
  8. SENNA ALEXANDRINA [Concomitant]

REACTIONS (1)
  - ILEUS [None]
